FAERS Safety Report 24186910 (Version 1)
Quarter: 2024Q3

REPORT INFORMATION
  Report Type: Spontaneous
  Country: IN (occurrence: IN)
  Receive Date: 20240808
  Receipt Date: 20240808
  Transmission Date: 20241017
  Serious: Yes (Other)
  Sender: MSN LABORATORIES
  Company Number: IN-MSNLABS-2024MSNSPO01699

PATIENT

DRUGS (1)
  1. PIRFENIDONE [Suspect]
     Active Substance: PIRFENIDONE
     Indication: Product used for unknown indication
     Route: 065

REACTIONS (4)
  - Pneumonia [Recovered/Resolved]
  - Visual impairment [Recovered/Resolved]
  - Nervous system disorder [Recovered/Resolved]
  - Laziness [Recovered/Resolved]
